FAERS Safety Report 10073636 (Version 2)
Quarter: 2014Q2

REPORT INFORMATION
  Report Type: Spontaneous
  Country: IT (occurrence: IT)
  Receive Date: 20140411
  Receipt Date: 20140626
  Transmission Date: 20141212
  Serious: Yes (Other)
  Sender: FDA-Public Use
  Company Number: IT-WATSON-2014-06994

PATIENT
  Age: 70 Year
  Sex: Male

DRUGS (1)
  1. LORAZEPAM (UNKNOWN) [Suspect]
     Indication: SLEEP DISORDER
     Dosage: 2.5 ML, TOTAL
     Route: 048
     Dates: start: 20140317, end: 20140317

REACTIONS (6)
  - Hypokinesia [Recovering/Resolving]
  - Sopor [Recovering/Resolving]
  - Speech disorder [Recovering/Resolving]
  - Intentional product misuse [Recovering/Resolving]
  - Dysarthria [Recovering/Resolving]
  - Drug abuse [Recovering/Resolving]
